FAERS Safety Report 7239146-1 (Version None)
Quarter: 2011Q1

REPORT INFORMATION
  Report Type: 
  Country: None (occurrence: None)
  Receive Date: 20110121
  Receipt Date: 20110111
  Transmission Date: 20110831
  Serious: Yes (Other)
  Sender: FDA-Public Use
  Company Number: US-PERRIGO-11US000304

PATIENT
  Age: 30 Year
  Sex: Male

DRUGS (3)
  1. IBUPROFEN [Suspect]
     Indication: ARTHRALGIA
     Dosage: UNK
     Route: 048
  2. NONI JUICE [Suspect]
     Indication: BLOOD GLUCOSE INCREASED
     Dosage: UNK, QD
     Route: 048
  3. INSULIN [Concomitant]
     Indication: TYPE 1 DIABETES MELLITUS
     Dosage: UNK
     Route: 065

REACTIONS (3)
  - RENAL IMPAIRMENT [None]
  - HYPOALDOSTERONISM [None]
  - HYPERKALAEMIA [None]
